FAERS Safety Report 21533007 (Version 1)
Quarter: 2022Q4

REPORT INFORMATION
  Report Type: Spontaneous
  Country: US (occurrence: US)
  Receive Date: 20221101
  Receipt Date: 20221101
  Transmission Date: 20230113
  Serious: No
  Sender: FDA-Public Use
  Company Number: US-ABBVIE-4132855

PATIENT
  Sex: Female
  Weight: 75 kg

DRUGS (2)
  1. HUMIRA [Suspect]
     Active Substance: ADALIMUMAB
     Indication: Rheumatoid arthritis
     Route: 058
  2. XELJANZ [Suspect]
     Active Substance: TOFACITINIB CITRATE
     Indication: Rheumatoid arthritis
     Route: 065
     Dates: start: 2017, end: 202209

REACTIONS (11)
  - Memory impairment [Unknown]
  - Rash [Unknown]
  - Drug ineffective [Unknown]
  - Pain [Unknown]
  - Intentional product misuse [Unknown]
  - Mobility decreased [Unknown]
  - Fall [Unknown]
  - Ligament sprain [Unknown]
  - Cartilage injury [Unknown]
  - Pruritus [Unknown]
  - Joint stiffness [Unknown]

NARRATIVE: CASE EVENT DATE: 20200101
